FAERS Safety Report 5122262-8 (Version None)
Quarter: 2006Q4

REPORT INFORMATION
  Report Type: 
  Country: None (occurrence: None)
  Receive Date: 20061006
  Receipt Date: 20060822
  Transmission Date: 20070319
  Serious: Yes (Death, Hospitalization)
  Sender: FDA-Public Use
  Company Number: PL-BRISTOL-MYERS SQUIBB COMPANY-13486188

PATIENT
  Age: 77 Year
  Sex: Female
  Weight: 63 kg

DRUGS (12)
  1. IRBESARTAN [Suspect]
     Indication: HYPERTENSION
     Dosage: STOPPED 11-AUG-2006
     Dates: start: 20040407
  2. BLINDED: PLACEBO [Suspect]
     Indication: HYPERTENSION
     Dosage: STOPPED 11-AUG-2006
     Dates: start: 20040407
  3. CLOPIDOGREL BISULFATE [Suspect]
     Indication: PROPHYLAXIS
     Dosage: STOPPED 11-AUG-2006
     Dates: start: 20040407
  4. ASPIRIN [Suspect]
     Indication: PROPHYLAXIS
     Dosage: STOPPED 11-AUG-2006
     Dates: start: 20040407
  5. SOTAHEXAL [Concomitant]
  6. KALIPOZ [Concomitant]
  7. MAGNEZIN [Concomitant]
  8. ACARD [Concomitant]
  9. SORTIS [Concomitant]
  10. ASPIRIN [Concomitant]
  11. EFFOX [Concomitant]
     Dates: start: 20041004
  12. OMEPRAZOLE [Concomitant]
     Indication: GASTRITIS
     Dates: start: 20050103

REACTIONS (2)
  - DIABETES MELLITUS [None]
  - GLIOBLASTOMA MULTIFORME [None]
